FAERS Safety Report 20947337 (Version 1)
Quarter: 2022Q2

REPORT INFORMATION
  Report Type: Spontaneous
  Country: US (occurrence: US)
  Receive Date: 20220610
  Receipt Date: 20220610
  Transmission Date: 20220720
  Serious: No
  Sender: FDA-Public Use
  Company Number: US-PFIZER INC-202200814502

PATIENT
  Age: 80 Year
  Sex: Female
  Weight: 58.97 kg

DRUGS (2)
  1. PREMARIN [Suspect]
     Active Substance: ESTROGENS, CONJUGATED
     Indication: Hysterectomy
     Dosage: 1.25 MG, DAILY
     Route: 048
  2. PREMARIN [Suspect]
     Active Substance: ESTROGENS, CONJUGATED
     Indication: Hot flush
     Dosage: 0.3 MG, DAILY (4 TIMES WEEKLY)
     Route: 048

REACTIONS (2)
  - Therapeutic response unexpected [Not Recovered/Not Resolved]
  - Intentional product misuse [Unknown]
